FAERS Safety Report 4489176-8 (Version None)
Quarter: 2004Q4

REPORT INFORMATION
  Report Type: 
  Country: None (occurrence: None)
  Receive Date: 20041029
  Receipt Date: 20041022
  Transmission Date: 20050328
  Serious: Yes (Death)
  Sender: FDA-Public Use
  Company Number: NSADSS2003005445

PATIENT
  Sex: Female
  Weight: 69.4 kg

DRUGS (6)
  1. REMINYL [Suspect]
     Indication: DRUG USE FOR UNKNOWN INDICATION
     Route: 049
  2. BETCIYAN [Concomitant]
     Dosage: 1 DROP EACH EYE
     Route: 031
  3. DETROL [Concomitant]
     Route: 049
  4. GLUCOTROL [Concomitant]
     Route: 049
  5. GLUCOPHAGE [Concomitant]
     Route: 049
  6. ZESTRIL [Concomitant]
     Route: 049

REACTIONS (1)
  - CEREBROVASCULAR ACCIDENT [None]
